FAERS Safety Report 22140864 (Version 1)
Quarter: 2023Q1

REPORT INFORMATION
  Report Type: Spontaneous
  Country: US (occurrence: None)
  Receive Date: 20230324
  Receipt Date: 20230324
  Transmission Date: 20230418
  Serious: Yes (Other)
  Sender: FDA-Public Use
  Company Number: None

PATIENT
  Age: 42 Year
  Sex: Male
  Weight: 99 kg

DRUGS (1)
  1. CHLORHEXIDINE [Suspect]
     Active Substance: CHLORHEXIDINE
     Indication: Antibiotic prophylaxis
     Dates: start: 20230314, end: 20230314

REACTIONS (5)
  - Skin reaction [None]
  - Rash [None]
  - Ulcer [None]
  - Pruritus [None]
  - Disturbance in attention [None]

NARRATIVE: CASE EVENT DATE: 20230319
